FAERS Safety Report 7364617-7 (Version None)
Quarter: 2011Q1

REPORT INFORMATION
  Report Type: 
  Country: None (occurrence: None)
  Receive Date: 20110315
  Receipt Date: 20110315
  Transmission Date: 20110831
  Serious: Yes (Hospitalization)
  Sender: FDA-Public Use
  Company Number: None

PATIENT
  Sex: Female
  Weight: 63.5 kg

DRUGS (2)
  1. AZACITIDINE [Suspect]
     Indication: ACUTE MYELOID LEUKAEMIA
  2. REVLIMID [Suspect]

REACTIONS (8)
  - NAUSEA [None]
  - ORAL PAIN [None]
  - FEBRILE NEUTROPENIA [None]
  - COUGH [None]
  - CONSTIPATION [None]
  - PETECHIAE [None]
  - MUSCLE SPASMS [None]
  - RHINORRHOEA [None]
